FAERS Safety Report 9219951 (Version 2)
Quarter: 2013Q3

REPORT INFORMATION
  Report Type: Report from Study
  Country: GB (occurrence: GB)
  Receive Date: 20130409
  Receipt Date: 20130820
  Transmission Date: 20140515
  Serious: Yes (Disabling)
  Sender: FDA-Public Use
  Company Number: GB-ROCHE-1210472

PATIENT
  Age: 88 Year
  Sex: Female

DRUGS (3)
  1. RANIBIZUMAB [Suspect]
     Indication: AGE-RELATED MACULAR DEGENERATION
     Dosage: LAST DOSE OF LUCENTIS ON 21/FEB/2013
     Route: 050
     Dates: start: 20090928
  2. RANIBIZUMAB [Suspect]
     Route: 050
     Dates: start: 20121101
  3. RANIBIZUMAB [Suspect]
     Route: 050
     Dates: start: 20130221

REACTIONS (1)
  - Retinal haemorrhage [Not Recovered/Not Resolved]
